FAERS Safety Report 19746699 (Version 4)
Quarter: 2021Q3

REPORT INFORMATION
  Report Type: Report from Study
  Country: US (occurrence: US)
  Receive Date: 20210826
  Receipt Date: 20210927
  Transmission Date: 20211014
  Serious: No
  Sender: FDA-Public Use
  Company Number: NVSC2021US187383

PATIENT
  Sex: Female

DRUGS (2)
  1. COREG [Interacting]
     Active Substance: CARVEDILOL
     Indication: PRODUCT USED FOR UNKNOWN INDICATION
     Dosage: UNK
     Route: 065
     Dates: start: 202103
  2. ENTRESTO [Suspect]
     Active Substance: SACUBITRIL\VALSARTAN
     Indication: CARDIAC FAILURE
     Dosage: 1 DF, BID
     Route: 048
     Dates: start: 20210730

REACTIONS (7)
  - Dyspnoea [Unknown]
  - Depression [Unknown]
  - Nausea [Unknown]
  - Sneezing [Unknown]
  - Feeling cold [Unknown]
  - Drug interaction [Unknown]
  - Hypotension [Unknown]
